FAERS Safety Report 18508663 (Version 1)
Quarter: 2020Q4

REPORT INFORMATION
  Report Type: Other
  Country: IR (occurrence: IR)
  Receive Date: 20201117
  Receipt Date: 20201117
  Transmission Date: 20210114
  Serious: Yes (Life-Threatening, Hospitalization, Other)
  Sender: FDA-Public Use
  Company Number: IR-DENTSPLY-2020SCDP000366

PATIENT
  Age: 64 Year
  Sex: Female

DRUGS (1)
  1. LIDOCAINE. [Suspect]
     Active Substance: LIDOCAINE
     Indication: PRODUCT USED FOR UNKNOWN INDICATION
     Dosage: 2.5% CREAM
     Route: 061

REACTIONS (2)
  - Cardiotoxicity [Recovered/Resolved]
  - Cardiac arrest [Recovered/Resolved]
